FAERS Safety Report 12726667 (Version 1)
Quarter: 2016Q3

REPORT INFORMATION
  Report Type: Report from Study
  Country: US (occurrence: US)
  Receive Date: 20160908
  Receipt Date: 20160908
  Transmission Date: 20161109
  Serious: Yes (Hospitalization)
  Sender: FDA-Public Use
  Company Number: US-ABBVIE-16K-163-1716353-00

PATIENT
  Sex: Male

DRUGS (1)
  1. HUMIRA [Suspect]
     Active Substance: ADALIMUMAB
     Indication: PRODUCT USED FOR UNKNOWN INDICATION
     Route: 058
     Dates: start: 20150611

REACTIONS (4)
  - Loss of consciousness [Unknown]
  - Inappropriate schedule of drug administration [Unknown]
  - Contusion [Unknown]
  - Fall [Unknown]

NARRATIVE: CASE EVENT DATE: 201608
